FAERS Safety Report 4889805-0 (Version None)
Quarter: 2006Q1

REPORT INFORMATION
  Report Type: 
  Country: None (occurrence: None)
  Receive Date: 20060124
  Receipt Date: 20050823
  Transmission Date: 20060701
  Serious: Yes (Other)
  Sender: FDA-Public Use
  Company Number: US-MERCK-0508USA03902

PATIENT
  Age: 49 Year
  Sex: Female
  Weight: 64 kg

DRUGS (14)
  1. VIOXX [Suspect]
     Indication: ARTHRITIS
     Route: 048
     Dates: start: 20010101, end: 20040101
  2. SINGULAIR [Concomitant]
     Route: 048
  3. TYLENOL (CAPLET) [Concomitant]
     Route: 065
     Dates: start: 20010101
  4. VENTOLIN [Concomitant]
     Route: 065
  5. LASIX [Concomitant]
     Route: 065
     Dates: start: 20010101
  6. ASPIRIN [Concomitant]
     Route: 065
     Dates: start: 20010101
  7. LESCOL [Concomitant]
     Route: 065
     Dates: start: 20020101
  8. ARAVA [Concomitant]
     Route: 065
  9. ISORDIL [Concomitant]
     Route: 065
     Dates: start: 20010101, end: 20030101
  10. METHOTREXATE SODIUM [Concomitant]
     Route: 065
     Dates: start: 20010101, end: 20020101
  11. PREDNISONE [Concomitant]
     Route: 065
  12. AVALIDE [Concomitant]
     Route: 065
     Dates: end: 20050101
  13. TOPROL-XL [Concomitant]
     Route: 065
  14. NORVASC [Concomitant]
     Route: 065
     Dates: end: 20030630

REACTIONS (17)
  - ASTHMA [None]
  - ATRIAL FIBRILLATION [None]
  - BLOOD CHOLESTEROL INCREASED [None]
  - BRADYCARDIA [None]
  - CARDIAC FAILURE CONGESTIVE [None]
  - CEREBROVASCULAR ACCIDENT [None]
  - CHEST PAIN [None]
  - DIABETES MELLITUS [None]
  - DYSPHAGIA [None]
  - FIBROMYALGIA [None]
  - HAEMATOCHEZIA [None]
  - HYPERTENSION [None]
  - OEDEMA PERIPHERAL [None]
  - RHEUMATOID ARTHRITIS [None]
  - SLEEP APNOEA SYNDROME [None]
  - THROMBOSIS [None]
  - ULCER [None]
